FAERS Safety Report 4286668-1 (Version None)
Quarter: 2004Q1

REPORT INFORMATION
  Report Type: 
  Country: None (occurrence: None)
  Receive Date: 20040204
  Receipt Date: 20040123
  Transmission Date: 20041129
  Serious: Yes (Other)
  Sender: FDA-Public Use
  Company Number: HQWYE357502DEC03

PATIENT
  Sex: Female

DRUGS (1)
  1. EFFEXOR XR [Suspect]
     Indication: DEPRESSION
     Dosage: SEE IMAGE
     Route: 048
     Dates: start: 20030416

REACTIONS (14)
  - BALANCE DISORDER [None]
  - DECREASED APPETITE [None]
  - DIZZINESS [None]
  - DRY MOUTH [None]
  - DYSGEUSIA [None]
  - FATIGUE [None]
  - GLOSSODYNIA [None]
  - HEAD DISCOMFORT [None]
  - HEADACHE [None]
  - OTITIS MEDIA [None]
  - PHOTOPHOBIA [None]
  - PRURITUS [None]
  - SWOLLEN TONGUE [None]
  - VIRAL INFECTION [None]
